FAERS Safety Report 6544161-7 (Version None)
Quarter: 2010Q1

REPORT INFORMATION
  Report Type: 
  Country: None (occurrence: None)
  Receive Date: 20100120
  Receipt Date: 20090601
  Transmission Date: 20100710
  Serious: No
  Sender: FDA-Public Use
  Company Number: US-ALLERGAN-0907598US

PATIENT
  Age: 68 Year
  Sex: Female

DRUGS (12)
  1. ZYMAR [Suspect]
     Indication: DRUG USE FOR UNKNOWN INDICATION
     Dosage: UNK, UNKNOWN
     Route: 047
     Dates: start: 20090524
  2. ACULAR LS [Suspect]
     Indication: DRUG USE FOR UNKNOWN INDICATION
     Dosage: UNK, UNKNOWN
     Route: 047
     Dates: start: 20090524
  3. PRED FORTE [Suspect]
     Indication: DRUG USE FOR UNKNOWN INDICATION
     Dosage: UNK, UNKNOWN
     Route: 047
     Dates: start: 20090526
  4. ACTOS [Concomitant]
     Dosage: 45 MG, QD
  5. NEURONTIN [Concomitant]
     Dosage: 300 MG, QID
  6. ACIPHEX [Concomitant]
     Dosage: 40 MG, QD
  7. CALAN [Concomitant]
     Dosage: 120 MG, QD
  8. COZAAR [Concomitant]
     Dosage: 80 QD
  9. PROZAC [Concomitant]
     Dosage: 20 MG, QD
  10. DETROL [Concomitant]
     Dosage: 8 MG, QD
  11. MOBIC [Concomitant]
     Dosage: 15 MG, QD
  12. ZANTAC [Concomitant]
     Dosage: 10 MG, QD

REACTIONS (2)
  - ABDOMINAL PAIN [None]
  - DIARRHOEA [None]
